FAERS Safety Report 18969025 (Version 3)
Quarter: 2021Q3

REPORT INFORMATION
  Report Type: Spontaneous
  Country: RU (occurrence: RU)
  Receive Date: 20210304
  Receipt Date: 20210902
  Transmission Date: 20211014
  Serious: No
  Sender: FDA-Public Use
  Company Number: RU-LUPIN PHARMACEUTICALS INC.-2021-02666

PATIENT
  Age: 68 Year
  Sex: Female

DRUGS (4)
  1. ALLOPURINOL. [Suspect]
     Active Substance: ALLOPURINOL
     Dosage: DOSE INCREASED BY 50MG EVERY 3 WEEKS TO ACHIEVE A DAILY DOSE OF 300MG
     Route: 048
  2. MELOXICAM TABLETS [Suspect]
     Active Substance: MELOXICAM
     Indication: GOUT
     Dosage: UNK UNK, QD (DOSE NOT EXCEEDING 15MG)
     Route: 048
     Dates: start: 2019
  3. ALLOPURINOL. [Suspect]
     Active Substance: ALLOPURINOL
     Indication: GOUT
     Dosage: UNK (INITIAL DOSE UNKNOWN)
     Route: 048
  4. ALLOPURINOL. [Suspect]
     Active Substance: ALLOPURINOL
     Dosage: 250 MILLIGRAM, QD (WHEN THE PATIENT EXPERIENCED RELAPSE OF GOUT, THE DOSE WAS 250MG/DAY)
     Route: 048
     Dates: start: 2019

REACTIONS (2)
  - Off label use [Unknown]
  - Drug ineffective [Unknown]

NARRATIVE: CASE EVENT DATE: 2019
